FAERS Safety Report 6684047-0 (Version None)
Quarter: 2010Q2

REPORT INFORMATION
  Report Type: 
  Country: None (occurrence: None)
  Receive Date: 20100416
  Receipt Date: 20100406
  Transmission Date: 20101027
  Serious: Yes (Other)
  Sender: FDA-Public Use
  Company Number: JP-PFIZER INC-2010043138

PATIENT
  Age: 50 Year
  Sex: Female

DRUGS (1)
  1. ZITHROMAX [Suspect]
     Indication: RHINORRHOEA
     Dosage: 500 MG/DAY

REACTIONS (3)
  - DISEASE PROGRESSION [None]
  - DRUG INEFFECTIVE [None]
  - OTITIS MEDIA [None]
